FAERS Safety Report 18585646 (Version 1)
Quarter: 2020Q4

REPORT INFORMATION
  Report Type: Spontaneous
  Country: US (occurrence: US)
  Receive Date: 20201204
  Receipt Date: 20201204
  Transmission Date: 20210114
  Serious: Yes (Death)
  Sender: FDA-Public Use
  Company Number: None

PATIENT
  Age: 71 Year
  Sex: Male

DRUGS (19)
  1. PREDNISONE. [Concomitant]
     Active Substance: PREDNISONE
  2. PANTOPRAZOLE [Concomitant]
     Active Substance: PANTOPRAZOLE
  3. PRED FORTE [Concomitant]
     Active Substance: PREDNISOLONE ACETATE
  4. TORSEMIDE. [Concomitant]
     Active Substance: TORSEMIDE
  5. FERROUS FULFATE [Concomitant]
  6. AMBRISENTAN 10MG TABLETS 30/BO: 10MG [Suspect]
     Active Substance: AMBRISENTAN
     Indication: PULMONARY ARTERIAL HYPERTENSION
     Route: 048
     Dates: start: 200904, end: 202006
  7. TYVASO [Concomitant]
     Active Substance: TREPROSTINIL
  8. ROXANOL [Concomitant]
     Active Substance: MORPHINE SULFATE
  9. FLOMAX [Concomitant]
     Active Substance: TAMSULOSIN HYDROCHLORIDE
  10. ATROVASTATIN [Concomitant]
     Active Substance: ATORVASTATIN CALCIUM
  11. METHOTREXATE. [Concomitant]
     Active Substance: METHOTREXATE
  12. FOLIC ACID. [Concomitant]
     Active Substance: FOLIC ACID
  13. SILDENAFIL. [Concomitant]
     Active Substance: SILDENAFIL
  14. NORCO [Concomitant]
     Active Substance: ACETAMINOPHEN\HYDROCODONE BITARTRATE
  15. FINASTERIDE. [Concomitant]
     Active Substance: FINASTERIDE
  16. SPIRONOLACTONE. [Concomitant]
     Active Substance: SPIRONOLACTONE
  17. PRADAXA [Concomitant]
     Active Substance: DABIGATRAN ETEXILATE MESYLATE
  18. METOPROLOL. [Concomitant]
     Active Substance: METOPROLOL
  19. SENNOSIDES. [Concomitant]
     Active Substance: SENNOSIDES

REACTIONS (3)
  - Gastrointestinal haemorrhage [None]
  - Polyuria [None]
  - Fluid overload [None]

NARRATIVE: CASE EVENT DATE: 20201031
